FAERS Safety Report 7036495-7 (Version None)
Quarter: 2010Q4

REPORT INFORMATION
  Report Type: 
  Country: None (occurrence: None)
  Receive Date: 20101011
  Receipt Date: 20100930
  Transmission Date: 20110411
  Serious: Yes (Hospitalization, Other)
  Sender: FDA-Public Use
  Company Number: US-BIOGENIDEC-207266

PATIENT
  Age: 61 Year
  Sex: Female

DRUGS (2)
  1. AVONEX [Suspect]
     Indication: MULTIPLE SCLEROSIS
     Route: 030
     Dates: start: 19960101
  2. TEGRETOL [Concomitant]

REACTIONS (5)
  - BLOOD COUNT ABNORMAL [None]
  - OVARIAN CANCER [None]
  - OVARIAN CANCER METASTATIC [None]
  - POSTMENOPAUSAL HAEMORRHAGE [None]
  - RETROPERITONEAL HAEMATOMA [None]
